FAERS Safety Report 14510253 (Version 2)
Quarter: 2018Q2

REPORT INFORMATION
  Report Type: Report from Study
  Country: US (occurrence: US)
  Receive Date: 20180209
  Receipt Date: 20180620
  Transmission Date: 20180711
  Serious: Yes (Hospitalization)
  Sender: FDA-Public Use
  Company Number: US-BAYER-2018-021597

PATIENT
  Age: 82 Year
  Sex: Male
  Weight: 126.98 kg

DRUGS (31)
  1. ADEMPAS [Suspect]
     Active Substance: RIOCIGUAT
     Indication: PULMONARY HYPERTENSION
     Dosage: 1.0 MG, TID
     Route: 048
  2. TOPROL XL [Concomitant]
     Active Substance: METOPROLOL SUCCINATE
     Dosage: UNK
  3. ASPIRIN. [Concomitant]
     Active Substance: ASPIRIN
     Dosage: 81 MG, QD
  4. OMEGA 3-6-9 [Concomitant]
     Active Substance: FISH OIL
     Dosage: 2000 MG, QD
  5. PROTONIX [Concomitant]
     Active Substance: PANTOPRAZOLE SODIUM
     Dosage: UNK
  6. ALBUTEROL. [Concomitant]
     Active Substance: ALBUTEROL
     Indication: DYSPNOEA
     Dosage: 2 PUFF(S), QID
     Route: 055
  7. ALBUTEROL. [Concomitant]
     Active Substance: ALBUTEROL
     Indication: WHEEZING
  8. ZOCOR [Concomitant]
     Active Substance: SIMVASTATIN
     Dosage: 20 MG, QD
  9. METOPROLOL. [Concomitant]
     Active Substance: METOPROLOL
     Dosage: 25 MG, QD
     Route: 048
  10. DUONEB [Concomitant]
     Active Substance: ALBUTEROL SULFATE\IPRATROPIUM BROMIDE
     Dosage: UNK UNK, QID
  11. MULTIVITAMIN [Concomitant]
     Active Substance: VITAMINS
     Dosage: UNK UNK, QD
  12. PROTONIX [Concomitant]
     Active Substance: PANTOPRAZOLE SODIUM
     Dosage: 40 MG, QD
     Route: 048
  13. METOPROLOL. [Concomitant]
     Active Substance: METOPROLOL
     Dosage: 12.5 MG, UNK
  14. FUROSEMIDE. [Concomitant]
     Active Substance: FUROSEMIDE
     Dosage: 40 MG, QD
     Route: 048
  15. KLOR-CON [Concomitant]
     Active Substance: POTASSIUM CHLORIDE
     Dosage: 1 DF, QD
     Route: 048
  16. ADEMPAS [Suspect]
     Active Substance: RIOCIGUAT
     Indication: PULMONARY HYPERTENSION
     Dosage: UNK
     Dates: start: 20171221
  17. ADEMPAS [Suspect]
     Active Substance: RIOCIGUAT
     Indication: PULMONARY ARTERIAL HYPERTENSION
     Dosage: 1.0 MG, TID
     Route: 048
  18. APIXABAN [Concomitant]
     Active Substance: APIXABAN
     Dosage: 2.5 MG, BID
     Route: 048
  19. LEVOTHYROXINE SODIUM. [Concomitant]
     Active Substance: LEVOTHYROXINE SODIUM
     Dosage: 0.1 MG, QD
     Route: 048
  20. VITAMIN B12 [Concomitant]
     Active Substance: CYANOCOBALAMIN
     Dosage: 1 MG, QD
     Route: 048
  21. POTASSIUM CHLORIDE. [Concomitant]
     Active Substance: POTASSIUM CHLORIDE
     Dosage: 10 MEQ, QD
     Route: 048
  22. POTASSIUM 99 [Concomitant]
     Dosage: 2 DF, QD
     Route: 048
  23. SYNTHROID [Concomitant]
     Active Substance: LEVOTHYROXINE SODIUM
     Dosage: 100 MCG/24HR, QD
     Route: 048
  24. ADEMPAS [Suspect]
     Active Substance: RIOCIGUAT
     Indication: PULMONARY HYPERTENSION
     Dosage: 0.5 MG, TID
  25. ALBUTEROL. [Concomitant]
     Active Substance: ALBUTEROL
     Indication: COUGH
  26. IPRATROPIUM [Concomitant]
     Active Substance: IPRATROPIUM
     Dosage: UNK UNK, PRN
  27. SPIRONOLACTON [Concomitant]
     Active Substance: SPIRONOLACTONE
     Dosage: UNK
  28. TOPROL XL [Concomitant]
     Active Substance: METOPROLOL SUCCINATE
     Dosage: 12.5 MG, QD
  29. COENZYME Q10 [Concomitant]
     Active Substance: UBIDECARENONE
     Dosage: 200 MG, QD
  30. LASIX [Concomitant]
     Active Substance: FUROSEMIDE
     Indication: WEIGHT INCREASED
     Dosage: 40 MG, PRN
  31. BACTRIM DS [Concomitant]
     Active Substance: SULFAMETHOXAZOLE\TRIMETHOPRIM
     Dosage: 160 MG, BID
     Route: 048

REACTIONS (11)
  - Hypokalaemia [Recovered/Resolved]
  - Orthostatic hypotension [Recovering/Resolving]
  - Seizure like phenomena [Recovering/Resolving]
  - Nausea [Recovered/Resolved]
  - Asthenia [Recovering/Resolving]
  - Weight decreased [Recovering/Resolving]
  - Syncope [Recovering/Resolving]
  - Dyspnoea [None]
  - Vomiting [Recovered/Resolved]
  - Influenza like illness [None]
  - Dehydration [Recovered/Resolved]

NARRATIVE: CASE EVENT DATE: 20180130
